FAERS Safety Report 6643188-4 (Version None)
Quarter: 2010Q1

REPORT INFORMATION
  Report Type: 
  Country: None (occurrence: None)
  Receive Date: 20100319
  Receipt Date: 20100313
  Transmission Date: 20100710
  Serious: Yes (Other)
  Sender: FDA-Public Use
  Company Number: PHEH2010US03135

PATIENT
  Age: 20 Year
  Sex: Female

DRUGS (2)
  1. TOBI [Suspect]
  2. TOBRAMYCIN [Suspect]
     Route: 042

REACTIONS (1)
  - DEAFNESS [None]
